FAERS Safety Report 13012354 (Version 3)
Quarter: 2017Q1

REPORT INFORMATION
  Report Type: Spontaneous
  Country: US (occurrence: US)
  Receive Date: 20161209
  Receipt Date: 20170103
  Transmission Date: 20170428
  Serious: No
  Sender: FDA-Public Use
  Company Number: US-PFIZER INC-2016572004

PATIENT
  Age: 57 Year
  Sex: Female
  Weight: 73 kg

DRUGS (3)
  1. FLORINEF ACETATE [Concomitant]
     Active Substance: FLUDROCORTISONE ACETATE
     Indication: ADRENAL DISORDER
     Dosage: 0.1 MG, 1X/DAY (ONCE IN THE MORNING)
  2. NICOTROL [Suspect]
     Active Substance: NICOTINE
     Indication: SMOKING CESSATION THERAPY
     Dosage: UNK
     Dates: start: 20161205, end: 201612
  3. DECADRON [Concomitant]
     Active Substance: DEXAMETHASONE
     Indication: ADRENAL DISORDER
     Dosage: 0.25 MG, 1X/DAY (HALF IN THE MORNING)

REACTIONS (5)
  - Oral pain [Unknown]
  - Stomatitis [Not Recovered/Not Resolved]
  - Lip swelling [Not Recovered/Not Resolved]
  - Hypoaesthesia oral [Recovered/Resolved]
  - Mouth swelling [Unknown]

NARRATIVE: CASE EVENT DATE: 201612
